FAERS Safety Report 5939048-4 (Version None)
Quarter: 2008Q4

REPORT INFORMATION
  Report Type: 
  Country: None (occurrence: None)
  Receive Date: 20081103
  Receipt Date: 20081031
  Transmission Date: 20090506
  Serious: Yes (Hospitalization, Disabling)
  Sender: FDA-Public Use
  Company Number: ES-SANOFI-SYNTHELABO-F01200801676

PATIENT
  Sex: Male

DRUGS (3)
  1. OXALIPLATIN [Suspect]
     Dosage: 270 MG
     Route: 041
     Dates: start: 20080513, end: 20080513
  2. BEVACIZUMAB [Suspect]
     Dosage: 700 MG
     Route: 041
     Dates: start: 20080630, end: 20080630
  3. CAPECITABINE [Suspect]
     Dosage: 4100 MG
     Route: 048
     Dates: end: 20080714

REACTIONS (2)
  - ABSCESS [None]
  - CELLULITIS [None]
